FAERS Safety Report 23664239 (Version 2)
Quarter: 2024Q2

REPORT INFORMATION
  Report Type: Report from Study
  Country: JP (occurrence: JP)
  Receive Date: 20240322
  Receipt Date: 20240401
  Transmission Date: 20240716
  Serious: Yes (Other)
  Sender: FDA-Public Use
  Company Number: JP-BAYER-2024A013026

PATIENT
  Sex: Female

DRUGS (1)
  1. VITRAKVI [Suspect]
     Active Substance: LAROTRECTINIB
     Dosage: DAILY DOSE 200 MG
     Dates: start: 20240111, end: 20240122

REACTIONS (4)
  - Back pain [Not Recovered/Not Resolved]
  - Superior vena cava syndrome [Recovered/Resolved with Sequelae]
  - Tumour associated fever [Recovered/Resolved with Sequelae]
  - Malignant neoplasm progression [None]
